FAERS Safety Report 6474579-2 (Version None)
Quarter: 2009Q4

REPORT INFORMATION
  Report Type: 
  Country: None (occurrence: None)
  Receive Date: 20091204
  Receipt Date: 20091203
  Transmission Date: 20100525
  Serious: No
  Sender: FDA-Public Use
  Company Number: B0602358A

PATIENT
  Sex: Female
  Weight: 85 kg

DRUGS (1)
  1. ALLI [Suspect]
     Dosage: 60MG THREE TIMES PER DAY
     Route: 065

REACTIONS (2)
  - ABDOMINAL PAIN UPPER [None]
  - PAIN [None]
